FAERS Safety Report 15208223 (Version 1)
Quarter: 2018Q3

REPORT INFORMATION
  Report Type: Spontaneous
  Country: TR (occurrence: TR)
  Receive Date: 20180727
  Receipt Date: 20180727
  Transmission Date: 20181010
  Serious: Yes (Other)
  Sender: FDA-Public Use
  Company Number: TR-APOTEX-2018AP018180

PATIENT
  Age: 4 Year
  Sex: Male

DRUGS (1)
  1. SERTRALINE [Suspect]
     Active Substance: SERTRALINE HYDROCHLORIDE
     Indication: PRODUCT USED FOR UNKNOWN INDICATION
     Dosage: 50 MG/DAY FROM THE FIRST TRIMESTER OF PREGNANCY CONTINUED WITH 200 MG/DAY TILL TO THE DELIVERY
     Route: 064

REACTIONS (3)
  - Gastrointestinal motility disorder [Unknown]
  - Foetal exposure during pregnancy [Unknown]
  - Withdrawal syndrome [Unknown]
